FAERS Safety Report 4892280-3 (Version None)
Quarter: 2006Q1

REPORT INFORMATION
  Report Type: 
  Country: None (occurrence: None)
  Receive Date: 20060125
  Receipt Date: 20060125
  Transmission Date: 20060701
  Serious: Yes (Life-Threatening, Hospitalization)
  Sender: FDA-Public Use
  Company Number: None

PATIENT
  Age: 73 Year
  Sex: Male
  Weight: 70.9 kg

DRUGS (6)
  1. RITUXAN [Suspect]
     Indication: B-CELL SMALL LYMPHOCYTIC LYMPHOMA
     Dosage: 600 MG DAILY X 3 DAYS IV
     Route: 042
     Dates: start: 20051107, end: 20060111
  2. FLUDARA [Suspect]
     Indication: B-CELL SMALL LYMPHOCYTIC LYMPHOMA
     Dosage: 45 MG DAILY X 3 DAYS IV
     Route: 042
     Dates: start: 20051107, end: 20060111
  3. ATENOLOL [Concomitant]
  4. KYTRIL [Concomitant]
  5. COMPAZINE [Concomitant]
  6. ATIVAN [Concomitant]

REACTIONS (5)
  - COUGH [None]
  - DYSPNOEA [None]
  - FATIGUE [None]
  - PNEUMOCYSTIS JIROVECI INFECTION [None]
  - STAPHYLOCOCCAL INFECTION [None]
